FAERS Safety Report 21683926 (Version 1)
Quarter: 2022Q4

REPORT INFORMATION
  Report Type: Spontaneous
  Country: US (occurrence: None)
  Receive Date: 20221202
  Receipt Date: 20221202
  Transmission Date: 20230113
  Serious: Yes (Hospitalization)
  Sender: FDA-Public Use
  Company Number: None

PATIENT
  Sex: Male

DRUGS (7)
  1. PIRFENIDONE [Suspect]
     Active Substance: PIRFENIDONE
     Indication: Idiopathic pulmonary fibrosis
     Dosage: FREQUENCY : 3 TIMES A DAY;?
     Route: 048
     Dates: start: 20220607
  2. APPLE CIDER TAB VINEGAR [Concomitant]
  3. ESBRIET [Concomitant]
     Active Substance: PIRFENIDONE
  4. FOLIC ACID TAB [Concomitant]
  5. TURMERIC CAP [Concomitant]
  6. TYLENOL TAB [Concomitant]
  7. VITAMIN B-12 TAB CR [Concomitant]

REACTIONS (2)
  - Gastric ulcer [None]
  - Gastrointestinal haemorrhage [None]
